FAERS Safety Report 12082209 (Version 12)
Quarter: 2019Q2

REPORT INFORMATION
  Report Type: Report from Study
  Country: US (occurrence: US)
  Receive Date: 20160217
  Receipt Date: 20190528
  Transmission Date: 20190711
  Serious: Yes (Other)
  Sender: FDA-Public Use
  Company Number: PHHY2015US159951

PATIENT
  Age: 28 Year
  Sex: Female

DRUGS (1)
  1. GILENYA [Suspect]
     Active Substance: FINGOLIMOD HYDROCHLORIDE
     Indication: MULTIPLE SCLEROSIS
     Dosage: UNK, QD
     Route: 048

REACTIONS (14)
  - Lymphocyte count decreased [Unknown]
  - Human papilloma virus test positive [Unknown]
  - Paraesthesia [Unknown]
  - Hyperaesthesia [Unknown]
  - Hepatitis B surface antibody positive [Unknown]
  - Fall [Unknown]
  - Weight decreased [Unknown]
  - Fatigue [Unknown]
  - White matter lesion [Unknown]
  - Central nervous system lesion [Unknown]
  - Pruritus [Unknown]
  - Initial insomnia [Unknown]
  - Angina pectoris [Unknown]
  - White blood cell count decreased [Unknown]

NARRATIVE: CASE EVENT DATE: 20151022
